FAERS Safety Report 17634315 (Version 1)
Quarter: 2020Q2

REPORT INFORMATION
  Report Type: Spontaneous
  Country: US (occurrence: US)
  Receive Date: 20200406
  Receipt Date: 20200406
  Transmission Date: 20200713
  Serious: No
  Sender: FDA-Public Use
  Company Number: US-TEVA-2020-US-1216835

PATIENT
  Age: 98 Year
  Sex: Female

DRUGS (2)
  1. MATZIM LA [Suspect]
     Active Substance: DILTIAZEM HYDROCHLORIDE
     Route: 065
  2. TYLENOL [Suspect]
     Active Substance: ACETAMINOPHEN
     Indication: PAIN
     Route: 065

REACTIONS (3)
  - Fall [Unknown]
  - Drug hypersensitivity [Unknown]
  - Incoherent [Recovered/Resolved]
